FAERS Safety Report 5898466-3 (Version None)
Quarter: 2008Q3

REPORT INFORMATION
  Report Type: 
  Country: None (occurrence: None)
  Receive Date: 20080925
  Receipt Date: 20071112
  Transmission Date: 20090109
  Serious: No
  Sender: FDA-Public Use
  Company Number: A0695237A

PATIENT
  Sex: Female

DRUGS (2)
  1. WELLBUTRIN XL [Suspect]
     Indication: DRUG USE FOR UNKNOWN INDICATION
  2. UNSPECIFIED MEDICATION [Concomitant]

REACTIONS (2)
  - GASTROINTESTINAL HYPERMOTILITY [None]
  - MEDICATION RESIDUE [None]
